FAERS Safety Report 4765086-3 (Version None)
Quarter: 2005Q3

REPORT INFORMATION
  Report Type: 
  Country: None (occurrence: None)
  Receive Date: 20050907
  Receipt Date: 20050829
  Transmission Date: 20060218
  Serious: Yes (Other)
  Sender: FDA-Public Use
  Company Number: 2005122261

PATIENT
  Age: 71 Year
  Sex: Male
  Weight: 78.4723 kg

DRUGS (4)
  1. NORVASC [Suspect]
     Indication: HYPERTENSION
     Dosage: 5 MG (5 MG, 1 IN 1 D)
  2. LIPITOR [Suspect]
     Indication: BLOOD CHOLESTEROL INCREASED
     Dosage: (10 MG, INTERVAL: QOD)
     Dates: start: 20050201
  3. HYZAAR [Concomitant]
  4. DIGOXIN [Concomitant]

REACTIONS (8)
  - BLOOD CHOLESTEROL INCREASED [None]
  - BLOOD GLUCOSE INCREASED [None]
  - DIABETES MELLITUS [None]
  - DIPLOPIA [None]
  - EYE PAIN [None]
  - HEADACHE [None]
  - MUSCLE TIGHTNESS [None]
  - TREATMENT NONCOMPLIANCE [None]
